FAERS Safety Report 9881314 (Version 1)
Quarter: 2014Q1

REPORT INFORMATION
  Report Type: Spontaneous
  Country: US (occurrence: US)
  Receive Date: 20140207
  Receipt Date: 20140207
  Transmission Date: 20141002
  Serious: No
  Sender: FDA-Public Use
  Company Number: US-TEVA-461345USA

PATIENT
  Age: 39 Year
  Sex: Female
  Weight: 85.81 kg

DRUGS (5)
  1. PARAGARD 380A [Suspect]
     Indication: CONTRACEPTION
     Route: 015
     Dates: start: 20131217, end: 20140204
  2. SEROQUEL [Concomitant]
     Dosage: 100 MILLIGRAM DAILY;
  3. ALPRAZOLAM [Concomitant]
     Indication: ANXIETY
     Dosage: 1 MILLIGRAM DAILY;
     Route: 048
  4. AMLODIPINE [Concomitant]
     Indication: HYPERTENSION
     Dosage: 5 MILLIGRAM DAILY;
     Route: 048
  5. LEXAPRO [Concomitant]
     Indication: ANXIETY
     Dosage: 20 MILLIGRAM DAILY;

REACTIONS (3)
  - Pelvic pain [Unknown]
  - Vaginal haemorrhage [Not Recovered/Not Resolved]
  - Device expulsion [Recovered/Resolved]
